FAERS Safety Report 7023655-4 (Version None)
Quarter: 2010Q3

REPORT INFORMATION
  Report Type: 
  Country: None (occurrence: None)
  Receive Date: 20100929
  Receipt Date: 20100929
  Transmission Date: 20110219
  Serious: Yes (Hospitalization, Disabling)
  Sender: FDA-Public Use
  Company Number: None

PATIENT
  Age: 83 Year
  Sex: Male
  Weight: 55 kg

DRUGS (1)
  1. WARFARIN [Suspect]
     Indication: ANTIPHOSPHOLIPID ANTIBODIES
     Dosage: 20 MG QWEEK PO
     Route: 048
     Dates: start: 20090720, end: 20100314

REACTIONS (5)
  - INTERNATIONAL NORMALISED RATIO ABNORMAL [None]
  - PNEUMONIA ASPIRATION [None]
  - PULMONARY EMBOLISM [None]
  - THALAMUS HAEMORRHAGE [None]
  - URINARY TRACT INFECTION [None]
